FAERS Safety Report 18461832 (Version 1)
Quarter: 2020Q4

REPORT INFORMATION
  Report Type: Spontaneous
  Country: US (occurrence: US)
  Receive Date: 20201103
  Receipt Date: 20201103
  Transmission Date: 20210114
  Serious: Yes (Hospitalization)
  Sender: FDA-Public Use
  Company Number: None

PATIENT
  Age: 4 Year
  Sex: Male

DRUGS (3)
  1. NORDITROPIN [Suspect]
     Active Substance: SOMATROPIN
     Route: 058
     Dates: start: 20200520
  2. PREDNISOLONE. [Concomitant]
     Active Substance: PREDNISOLONE
  3. VENTOLIN HFA [Concomitant]
     Active Substance: ALBUTEROL SULFATE

REACTIONS (2)
  - Dyspnoea [None]
  - Viral infection [None]

NARRATIVE: CASE EVENT DATE: 20201017
